FAERS Safety Report 7747283-8 (Version None)
Quarter: 2011Q3

REPORT INFORMATION
  Report Type: 
  Country: None (occurrence: None)
  Receive Date: 20110909
  Receipt Date: 20110826
  Transmission Date: 20111222
  Serious: Yes (Other)
  Sender: FDA-Public Use
  Company Number: AUR-APL-2011-04834

PATIENT
  Age: 61 Year
  Sex: Male

DRUGS (5)
  1. LEVOTHYROXINE SODIUM [Suspect]
     Indication: HYPOTHYROIDISM
     Dosage: 100 MCG, ORAL
     Route: 048
     Dates: start: 20100728
  2. METFORMIN HCL [Suspect]
     Indication: DIABETES MELLITUS
     Dosage: 1000, MG, ORAL
     Route: 048
     Dates: start: 20090101
  3. CLOZARIL [Suspect]
     Indication: SCHIZOPHRENIA
     Dosage: 350 MG,ORAL
     Route: 048
     Dates: start: 20100628
  4. CLOZARIL [Suspect]
     Indication: SCHIZOPHRENIA
     Dosage: 350 MG,ORAL
     Route: 048
     Dates: start: 20050926
  5. ESOMEPRAZOLE MAGNESIUM [Suspect]
     Indication: OESOPHAGITIS
     Dosage: 40 MG, ORAL
     Route: 048
     Dates: start: 19901123

REACTIONS (4)
  - METASTASES TO THE MEDIASTINUM [None]
  - MALAISE [None]
  - DIABETES MELLITUS [None]
  - OESOPHAGEAL CARCINOMA [None]
